FAERS Safety Report 10574215 (Version 3)
Quarter: 2014Q4

REPORT INFORMATION
  Report Type: Report from Study
  Country: GB (occurrence: GB)
  Receive Date: 20141110
  Receipt Date: 20141204
  Transmission Date: 20150529
  Serious: Yes (Other)
  Sender: FDA-Public Use
  Company Number: GB-CELGENE-GBR-2014105262

PATIENT
  Age: 56 Year
  Sex: Male
  Weight: 108.5 kg

DRUGS (10)
  1. REVLIMID [Suspect]
     Active Substance: LENALIDOMIDE
     Indication: PLASMA CELL MYELOMA
     Route: 048
     Dates: start: 20140801, end: 20141019
  2. ALLOPURINOL. [Concomitant]
     Active Substance: ALLOPURINOL
     Indication: HYPERURICAEMIA
     Route: 048
     Dates: start: 20141020
  3. ITRACONAZOLE. [Concomitant]
     Active Substance: ITRACONAZOLE
     Route: 048
     Dates: start: 20140526
  4. OMEPRAZOLE. [Concomitant]
     Active Substance: OMEPRAZOLE
     Indication: DYSPEPSIA
     Route: 048
     Dates: start: 20140530
  5. SULPHASALAZINE [Concomitant]
     Active Substance: SULFASALAZINE
     Indication: INFLAMMATORY BOWEL DISEASE
     Route: 048
  6. SYMBICORT [Concomitant]
     Active Substance: BUDESONIDE\FORMOTEROL FUMARATE DIHYDRATE
     Indication: ASTHMA
     Dosage: 50 MILLIGRAM
     Route: 055
  7. CIPROFLOXACIN. [Concomitant]
     Active Substance: CIPROFLOXACIN
     Indication: PRODUCT USED FOR UNKNOWN INDICATION
     Route: 048
     Dates: start: 20141020
  8. MONTELUKAST [Concomitant]
     Active Substance: MONTELUKAST SODIUM
     Indication: ASTHMA
     Route: 048
  9. CICLOSPORIN [Concomitant]
     Active Substance: CYCLOSPORINE
     Indication: IMMUNOSUPPRESSION
     Dosage: 10 MILLIGRAM
     Route: 048
     Dates: start: 20140529
  10. ACICLOVIR [Concomitant]
     Active Substance: ACYCLOVIR
     Indication: ANTIVIRAL PROPHYLAXIS
     Route: 048
     Dates: start: 20140526

REACTIONS (3)
  - Hypotension [Fatal]
  - Pseudomonal sepsis [Not Recovered/Not Resolved]
  - Kaposi^s sarcoma [Not Recovered/Not Resolved]

NARRATIVE: CASE EVENT DATE: 20141019
